FAERS Safety Report 18627699 (Version 1)
Quarter: 2020Q4

REPORT INFORMATION
  Report Type: Spontaneous
  Country: US (occurrence: US)
  Receive Date: 20201217
  Receipt Date: 20201217
  Transmission Date: 20210114
  Serious: Yes (Other)
  Sender: FDA-Public Use
  Company Number: US-AMGEN-USASP2020200437

PATIENT
  Age: 67 Year
  Sex: Female

DRUGS (2)
  1. PROLIA [Suspect]
     Active Substance: DENOSUMAB
     Indication: OSTEOPOROSIS
     Dosage: UNK
     Route: 065
  2. ALENDRONATE [Concomitant]
     Active Substance: ALENDRONATE SODIUM

REACTIONS (10)
  - Vitamin B6 increased [Unknown]
  - Sleep disorder [Unknown]
  - Spinal osteoarthritis [Unknown]
  - Femoral neck fracture [Unknown]
  - Tibia fracture [Unknown]
  - Arthritis [Unknown]
  - Fatigue [Unknown]
  - Osteoarthritis [Unknown]
  - Fibula fracture [Unknown]
  - Tooth fracture [Unknown]
